FAERS Safety Report 4370743-7 (Version None)
Quarter: 2004Q2

REPORT INFORMATION
  Report Type: 
  Country: None (occurrence: None)
  Receive Date: 20040602
  Receipt Date: 20040602
  Transmission Date: 20050107
  Serious: Yes (Other)
  Sender: FDA-Public Use
  Company Number: None

PATIENT
  Age: 71 Year
  Sex: Male
  Weight: 98.9 kg

DRUGS (1)
  1. LISINOPRIL [Suspect]

REACTIONS (1)
  - TREMOR [None]
